FAERS Safety Report 10530369 (Version 2)
Quarter: 2014Q4

REPORT INFORMATION
  Report Type: Spontaneous
  Country: DE (occurrence: None)
  Receive Date: 20141017
  Receipt Date: 20141022
  Transmission Date: 20150528
  Serious: Yes (Other)
  Sender: FDA-Public Use
  Company Number: 2014100023

PATIENT
  Age: 58 Year
  Sex: Male

DRUGS (2)
  1. NABILONE [Suspect]
     Active Substance: NABILONE
     Indication: COGNITIVE DISORDER
  2. NABILONE [Suspect]
     Active Substance: NABILONE
     Indication: CHOREOATHETOSIS

REACTIONS (2)
  - Gait disturbance [None]
  - Chorea [None]
